FAERS Safety Report 6447858-2 (Version None)
Quarter: 2009Q4

REPORT INFORMATION
  Report Type: 
  Country: None (occurrence: None)
  Receive Date: 20091120
  Receipt Date: 20091110
  Transmission Date: 20100525
  Serious: Yes (Hospitalization)
  Sender: FDA-Public Use
  Company Number: PT-JNJFOC-20090906330

PATIENT
  Sex: Female

DRUGS (3)
  1. REMICADE [Suspect]
     Dosage: 5TH INFUSION
     Route: 042
     Dates: end: 20090806
  2. REMICADE [Suspect]
     Indication: CROHN'S DISEASE
     Dosage: 4 INFUSIONS ON UNSPECIFIED DATES
     Route: 042
     Dates: end: 20090806
  3. HYDROCORTISONE [Concomitant]
     Indication: PREMEDICATION

REACTIONS (6)
  - CROHN'S DISEASE [None]
  - INFUSION RELATED REACTION [None]
  - LEUKOCYTOSIS [None]
  - TACHYCARDIA [None]
  - THROMBOCYTOSIS [None]
  - URTICARIA [None]
